FAERS Safety Report 16777075 (Version 2)
Quarter: 2020Q1

REPORT INFORMATION
  Report Type: Report from Study
  Country: US (occurrence: US)
  Receive Date: 20190905
  Receipt Date: 20200106
  Transmission Date: 20200409
  Serious: Yes (Hospitalization, Other)
  Sender: FDA-Public Use
  Company Number: PHEH2019US036645

PATIENT
  Sex: Female
  Weight: 61.23 kg

DRUGS (2)
  1. ENTRESTO [Suspect]
     Active Substance: SACUBITRIL\VALSARTAN
     Indication: CARDIAC FAILURE CONGESTIVE
     Dosage: 1 DF (97MG OF SACUBITRIL AND 103 MG OF VALSARTAN ), BID
     Route: 048
     Dates: start: 2016
  2. ENTRESTO [Suspect]
     Active Substance: SACUBITRIL\VALSARTAN
     Indication: CARDIAC FAILURE CHRONIC
     Dosage: UNK UNK, BID
     Route: 048

REACTIONS (6)
  - Stent malfunction [Unknown]
  - Dyspnoea [Unknown]
  - Myocardial infarction [Unknown]
  - Drug ineffective [Unknown]
  - Oesophageal disorder [Unknown]
  - Dysphagia [Unknown]
